FAERS Safety Report 4475966-4 (Version None)
Quarter: 2004Q3

REPORT INFORMATION
  Report Type: 
  Country: None (occurrence: None)
  Receive Date: 20040923
  Receipt Date: 20040709
  Transmission Date: 20050211
  Serious: No
  Sender: FDA-Public Use
  Company Number: USA040772326

PATIENT
  Sex: Female

DRUGS (3)
  1. FORTEO [Suspect]
  2. SPIRONOLACTONE [Concomitant]
  3. COUMADIN [Concomitant]

REACTIONS (3)
  - CHILLS [None]
  - HEADACHE [None]
  - TREMOR [None]
